FAERS Safety Report 25641438 (Version 2)
Quarter: 2025Q3

REPORT INFORMATION
  Report Type: Spontaneous
  Country: EU (occurrence: EU)
  Receive Date: 20250804
  Receipt Date: 20250821
  Transmission Date: 20251021
  Serious: Yes (Other)
  Sender: MYLAN
  Company Number: EU-MYLANLABS-2025M1060455

PATIENT
  Sex: Male

DRUGS (2)
  1. LYRICA [Suspect]
     Active Substance: PREGABALIN
     Indication: Generalised anxiety disorder
     Dosage: 5 DOSAGE FORM, AM (TREATED FROM 6 YEARS)
  2. LYRICA [Suspect]
     Active Substance: PREGABALIN
     Dosage: UNK, QD (MORE THAN 1800 MG PER DAY)

REACTIONS (4)
  - Drug abuse [Unknown]
  - Drug dependence [Not Recovered/Not Resolved]
  - Brain fog [Not Recovered/Not Resolved]
  - Overdose [Unknown]
